FAERS Safety Report 11334050 (Version 1)
Quarter: 2015Q3

REPORT INFORMATION
  Report Type: Spontaneous
  Country: US (occurrence: US)
  Receive Date: 20150803
  Receipt Date: 20150803
  Transmission Date: 20151125
  Serious: No
  Sender: FDA-Public Use
  Company Number: US-SA-2015SA043046

PATIENT
  Age: 56 Year
  Sex: Female
  Weight: 104.3 kg

DRUGS (9)
  1. PROVIGIL [Suspect]
     Active Substance: MODAFINIL
     Indication: ASTHENIA
     Dosage: HAD BEEN ON PROVIGIL FOR ABOUT 10 YEARS
     Route: 065
  2. PROZAC [Concomitant]
     Active Substance: FLUOXETINE HYDROCHLORIDE
     Dosage: FREQUENCY; QAM
     Route: 065
     Dates: start: 1995
  3. AMANTADINE [Concomitant]
     Active Substance: AMANTADINE
     Route: 065
     Dates: start: 1998
  4. MULTIPLE VITAMINS [Concomitant]
     Active Substance: VITAMINS
     Dosage: START DATE:   SINCE YEARS
     Route: 065
  5. AMBIEN [Suspect]
     Active Substance: ZOLPIDEM TARTRATE
     Indication: INSOMNIA
     Route: 065
  6. AMPYRA [Suspect]
     Active Substance: DALFAMPRIDINE
     Indication: GAIT DISTURBANCE
     Dosage: 1 TABET IN THE MORNING FOR 5 MONTHS
     Route: 048
     Dates: end: 201412
  7. TECFIDERA [Concomitant]
     Active Substance: DIMETHYL FUMARATE
     Route: 065
     Dates: start: 1998
  8. PROZAC [Concomitant]
     Active Substance: FLUOXETINE HYDROCHLORIDE
     Route: 065
     Dates: start: 201403
  9. AMPYRA [Suspect]
     Active Substance: DALFAMPRIDINE
     Indication: GAIT DISTURBANCE
     Route: 048
     Dates: start: 201404

REACTIONS (1)
  - Hangover [Recovered/Resolved]
